FAERS Safety Report 6880062-2 (Version None)
Quarter: 2010Q3

REPORT INFORMATION
  Report Type: 
  Country: None (occurrence: None)
  Receive Date: 20100728
  Receipt Date: 20090609
  Transmission Date: 20110219
  Serious: No
  Sender: FDA-Public Use
  Company Number: US-BRISTOL-MYERS SQUIBB COMPANY-14655245

PATIENT
  Age: 50 Year
  Sex: Male
  Weight: 112 kg

DRUGS (9)
  1. SPRYCEL [Suspect]
     Indication: CHRONIC MYELOID LEUKAEMIA
     Dates: start: 20090518, end: 20090604
  2. DYAZIDE [Concomitant]
  3. LASIX [Concomitant]
  4. POTASSIUM [Concomitant]
  5. ALDACTONE [Concomitant]
  6. DARVOCET [Concomitant]
  7. ALLOPURINOL [Concomitant]
  8. HYDREA [Concomitant]
  9. GLEEVEC [Concomitant]

REACTIONS (1)
  - HEADACHE [None]
